FAERS Safety Report 15547993 (Version 4)
Quarter: 2018Q4

REPORT INFORMATION
  Report Type: Report from Study
  Country: BR (occurrence: BR)
  Receive Date: 20181024
  Receipt Date: 20181121
  Transmission Date: 20190205
  Serious: Yes (Other)
  Sender: FDA-Public Use
  Company Number: PHHY2018BR133097

PATIENT
  Sex: Female
  Weight: 63 kg

DRUGS (14)
  1. LOSARTAN. [Concomitant]
     Active Substance: LOSARTAN
     Indication: HYPERTENSION
     Dosage: 1 DF, QD
     Route: 048
  2. ROHYPNOL [Concomitant]
     Active Substance: FLUNITRAZEPAM
     Indication: DEPRESSION
     Dosage: 1 DF, QD (MANY YEARS AGO)
     Route: 048
  3. ATENOLOL. [Concomitant]
     Active Substance: ATENOLOL
     Indication: HYPERTENSION
     Dosage: 1 DF, QD
     Route: 048
  4. SOCIAN [Concomitant]
     Active Substance: AMISULPRIDE
     Indication: DEPRESSION
     Dosage: 2 DF, BID (MANY YEARS AGO)
     Route: 048
  5. NOVORAPID [Concomitant]
     Active Substance: INSULIN ASPART
     Indication: DIABETES MELLITUS
     Dosage: UNK UNK, TID (15 TO 20 IU) (MANY YEARS AGO)
     Route: 058
  6. ACLASTA [Suspect]
     Active Substance: ZOLEDRONIC ACID
     Dosage: 1 DF, QD
     Route: 042
     Dates: start: 2017
  7. LOSARTAN. [Concomitant]
     Active Substance: LOSARTAN
     Dosage: 2 DF, QD (MANY YEARS AGO)
     Route: 048
  8. VITAMIN D [Concomitant]
     Active Substance: CHOLECALCIFEROL
     Indication: PRODUCT USED FOR UNKNOWN INDICATION
     Dosage: UNK
     Route: 065
  9. JARDIANCE [Concomitant]
     Active Substance: EMPAGLIFLOZIN
     Indication: BLOOD GLUCOSE INCREASED
     Dosage: 2 DF, BID (MANY YEARS AGO)
     Route: 048
     Dates: start: 2018
  10. ACLASTA [Suspect]
     Active Substance: ZOLEDRONIC ACID
     Indication: OSTEOPOROSIS
     Dosage: 1 DF, QD
     Route: 042
     Dates: start: 2015
  11. PAMELOR [Concomitant]
     Active Substance: NORTRIPTYLINE HYDROCHLORIDE
     Indication: SPINAL PAIN
     Dosage: 3 DF, TID
     Route: 048
     Dates: start: 201709
  12. ACLASTA [Suspect]
     Active Substance: ZOLEDRONIC ACID
     Dosage: 1 DF, QD
     Route: 042
     Dates: start: 201612
  13. ATENOLOL. [Concomitant]
     Active Substance: ATENOLOL
     Dosage: 2 DF, QD (MANY YEARS AGO)
     Route: 048
  14. CALCIUM [Concomitant]
     Active Substance: CALCIUM
     Indication: PRODUCT USED FOR UNKNOWN INDICATION
     Dosage: UNK
     Route: 065

REACTIONS (8)
  - Pain [Not Recovered/Not Resolved]
  - Memory impairment [Recovering/Resolving]
  - Gait disturbance [Not Recovered/Not Resolved]
  - Hypoglycaemia [Not Recovered/Not Resolved]
  - Cerebrovascular accident [Not Recovered/Not Resolved]
  - Blood pressure increased [Not Recovered/Not Resolved]
  - Weight decreased [Recovering/Resolving]
  - Spinal disorder [Not Recovered/Not Resolved]

NARRATIVE: CASE EVENT DATE: 2016
